FAERS Safety Report 23837040 (Version 1)
Quarter: 2024Q2

REPORT INFORMATION
  Report Type: Spontaneous
  Country: CN (occurrence: CN)
  Receive Date: 20240509
  Receipt Date: 20240509
  Transmission Date: 20240716
  Serious: Yes (Other)
  Sender: FDA-Public Use
  Company Number: CN-ELI_LILLY_AND_COMPANY-CN202405000489

PATIENT
  Age: 70 Year
  Sex: Male

DRUGS (6)
  1. PEMETREXED [Suspect]
     Active Substance: PEMETREXED
     Indication: Lung neoplasm malignant
     Dosage: 800 MG, SINGLE
     Route: 041
     Dates: start: 20240320, end: 20240320
  2. CISPLATIN [Suspect]
     Active Substance: CISPLATIN
     Indication: Lung neoplasm malignant
     Dosage: 40 MG, SINGLE
     Route: 041
     Dates: start: 20240320, end: 20240320
  3. CISPLATIN [Suspect]
     Active Substance: CISPLATIN
     Dosage: 30 MG, SINGLE
     Route: 041
     Dates: start: 20240321, end: 20240321
  4. SODIUM CHLORIDE [Concomitant]
     Active Substance: SODIUM CHLORIDE
     Indication: Medication dilution
     Dosage: 500 ML, SINGLE
     Route: 041
     Dates: start: 20240320, end: 20240320
  5. SODIUM CHLORIDE [Concomitant]
     Active Substance: SODIUM CHLORIDE
     Dosage: 250 ML, SINGLE
     Route: 041
     Dates: start: 20240320, end: 20240320
  6. SODIUM CHLORIDE [Concomitant]
     Active Substance: SODIUM CHLORIDE
     Dosage: 500 ML, SINGLE
     Route: 041
     Dates: start: 20240321, end: 20240321

REACTIONS (2)
  - Hepatic failure [Recovering/Resolving]
  - Myelosuppression [Recovering/Resolving]

NARRATIVE: CASE EVENT DATE: 20240323
